FAERS Safety Report 14534120 (Version 1)
Quarter: 2018Q1

REPORT INFORMATION
  Report Type: Spontaneous
  Country: US (occurrence: US)
  Receive Date: 20180214
  Receipt Date: 20180214
  Transmission Date: 20180509
  Serious: No
  Sender: FDA-Public Use
  Company Number: None

PATIENT
  Age: 79 Year
  Sex: Female

DRUGS (1)
  1. HUMIRA [Suspect]
     Active Substance: ADALIMUMAB
     Indication: MYOCARDITIS
     Route: 058
     Dates: start: 20080201

REACTIONS (3)
  - Pruritus [None]
  - Rash [None]
  - Sjogren^s syndrome [None]

NARRATIVE: CASE EVENT DATE: 20180202
